FAERS Safety Report 6544494-4 (Version None)
Quarter: 2010Q1

REPORT INFORMATION
  Report Type: 
  Country: None (occurrence: None)
  Receive Date: 20100121
  Receipt Date: 20100118
  Transmission Date: 20100710
  Serious: Yes (Death, Life-Threatening, Hospitalization)
  Sender: FDA-Public Use
  Company Number: IT-ROCHE-679719

PATIENT
  Age: 65 Year
  Sex: Male

DRUGS (6)
  1. XELODA [Suspect]
     Dosage: FREQUENCY:CYCLE
     Route: 048
     Dates: start: 20091116, end: 20100112
  2. OXALIPLATIN [Suspect]
     Dosage: FREQUENCY: CYCLE
     Route: 042
     Dates: start: 20091116, end: 20100107
  3. ATENOLOL [Concomitant]
     Indication: DRUG USE FOR UNKNOWN INDICATION
  4. HYDROCHLOROTHIAZIDE [Concomitant]
     Indication: DRUG USE FOR UNKNOWN INDICATION
  5. AMLODIPINE [Concomitant]
     Indication: DRUG USE FOR UNKNOWN INDICATION
  6. DEXAMETHASONE [Concomitant]
     Indication: DRUG USE FOR UNKNOWN INDICATION
     Route: 042
     Dates: start: 20100107, end: 20100107

REACTIONS (5)
  - DEATH [None]
  - DISORIENTATION [None]
  - DYSARTHRIA [None]
  - DYSSTASIA [None]
  - NERVOUS SYSTEM DISORDER [None]
